FAERS Safety Report 5298787-1 (Version None)
Quarter: 2007Q2

REPORT INFORMATION
  Report Type: 
  Country: None (occurrence: None)
  Receive Date: 20070417
  Receipt Date: 20070412
  Transmission Date: 20071010
  Serious: Yes (Other)
  Sender: FDA-Public Use
  Company Number: HQWYE906127MAR07

PATIENT
  Sex: Male

DRUGS (4)
  1. CORDARONE [Suspect]
     Indication: ARRHYTHMIA PROPHYLAXIS
     Dosage: NOT SPECIFIED
     Route: 065
     Dates: start: 19960101, end: 20040101
  2. ASPIRIN [Concomitant]
     Indication: THROMBOSIS PROPHYLAXIS
     Route: 048
     Dates: start: 20040929
  3. CLOPIDOGREL [Concomitant]
     Indication: THROMBOSIS PROPHYLAXIS
     Route: 048
     Dates: start: 20040929, end: 20070215
  4. CLOPIDOGREL [Concomitant]
     Route: 048
     Dates: start: 20070306

REACTIONS (3)
  - PULMONARY FIBROSIS [None]
  - PULMONARY SARCOIDOSIS [None]
  - SILICOSIS [None]
